FAERS Safety Report 6049418-4 (Version None)
Quarter: 2009Q1

REPORT INFORMATION
  Report Type: 
  Country: None (occurrence: None)
  Receive Date: 20090123
  Receipt Date: 20090119
  Transmission Date: 20090719
  Serious: Yes (Other)
  Sender: FDA-Public Use
  Company Number: NL-ABBOTT-09P-114-0498542-00

PATIENT
  Sex: Male
  Weight: 65 kg

DRUGS (11)
  1. KLACID TABLETS [Suspect]
     Indication: POLYPECTOMY
     Route: 048
     Dates: start: 20081117, end: 20081209
  2. SIMVASTATINE PCH COATED [Concomitant]
     Indication: DRUG USE FOR UNKNOWN INDICATION
     Route: 048
     Dates: start: 20080516
  3. ASPIRIN AND DIPYRIDAMOLE [Concomitant]
     Indication: DRUG USE FOR UNKNOWN INDICATION
     Dosage: 25/200 MG TWO TIMES DAILY
     Route: 048
     Dates: start: 20000925
  4. ALFUZOSINE HCL [Concomitant]
     Indication: DRUG USE FOR UNKNOWN INDICATION
     Route: 048
     Dates: start: 20050224
  5. CELESTONE SOLUSPAN [Concomitant]
     Indication: DRUG USE FOR UNKNOWN INDICATION
     Route: 048
     Dates: start: 20081104, end: 20081209
  6. PANTAZOL [Concomitant]
     Indication: DRUG USE FOR UNKNOWN INDICATION
     Route: 048
     Dates: start: 20081203, end: 20081210
  7. LISINOPRIL [Concomitant]
     Indication: DRUG USE FOR UNKNOWN INDICATION
     Route: 048
     Dates: start: 20080805
  8. METFORMIN HCL [Concomitant]
     Indication: DRUG USE FOR UNKNOWN INDICATION
     Route: 048
     Dates: start: 20050201
  9. ATENOLOL/CHLOORTALIDON PCH [Concomitant]
     Indication: DRUG USE FOR UNKNOWN INDICATION
     Dosage: 100/25MG
     Route: 048
     Dates: start: 20000602
  10. AVAMYS NOSESPRAY [Concomitant]
     Indication: DRUG USE FOR UNKNOWN INDICATION
  11. GLIMEPIRIDE PCH [Concomitant]
     Indication: DRUG USE FOR UNKNOWN INDICATION
     Route: 048
     Dates: start: 20080117

REACTIONS (1)
  - SWOLLEN TONGUE [None]
